FAERS Safety Report 8844333 (Version 4)
Quarter: 2013Q1

REPORT INFORMATION
  Report Type: Report from Study
  Country: AU (occurrence: AU)
  Receive Date: 20121017
  Receipt Date: 20130320
  Transmission Date: 20140127
  Serious: Yes (Other)
  Sender: FDA-Public Use
  Company Number: AU-JNJFOC-20121005265

PATIENT
  Sex: Female

DRUGS (11)
  1. STELARA [Suspect]
     Indication: PSORIASIS
     Route: 058
     Dates: start: 20110701
  2. STELARA [Suspect]
     Indication: PSORIASIS
     Route: 058
     Dates: start: 20110407
  3. STELARA [Suspect]
     Indication: PSORIASIS
     Route: 058
     Dates: start: 20110108
  4. STELARA [Suspect]
     Indication: PSORIASIS
     Route: 058
     Dates: start: 20120501
  5. STELARA [Suspect]
     Indication: PSORIASIS
     Route: 058
     Dates: start: 20100720
  6. STELARA [Suspect]
     Indication: PSORIASIS
     Route: 058
     Dates: start: 20100621
  7. STELARA [Suspect]
     Indication: PSORIASIS
     Route: 058
     Dates: start: 20120806
  8. STELARA [Suspect]
     Indication: PSORIASIS
     Route: 058
     Dates: start: 20110923
  9. STELARA [Suspect]
     Indication: PSORIASIS
     Route: 058
     Dates: start: 20101013
  10. METHOTREXATE [Suspect]
     Indication: PSORIASIS
     Dates: start: 201110
  11. METHOTREXATE [Suspect]
     Indication: PSORIASIS
     Dates: start: 20121001

REACTIONS (2)
  - Muscle rupture [Unknown]
  - Psoriasis [Not Recovered/Not Resolved]
